FAERS Safety Report 25691571 (Version 1)
Quarter: 2025Q3

REPORT INFORMATION
  Report Type: Spontaneous
  Country: US (occurrence: US)
  Receive Date: 20250818
  Receipt Date: 20250818
  Transmission Date: 20251020
  Serious: Yes (Other)
  Sender: AMGEN
  Company Number: US-AMGEN-USASP2025160465

PATIENT

DRUGS (2)
  1. TRASTUZUMAB [Suspect]
     Active Substance: TRASTUZUMAB
     Indication: Breast cancer
     Route: 065
  2. PERTUZUMAB [Concomitant]
     Active Substance: PERTUZUMAB

REACTIONS (4)
  - Breast cancer recurrent [Unknown]
  - Breast cancer metastatic [Unknown]
  - HERG gene mutation [Unknown]
  - Off label use [Unknown]
